FAERS Safety Report 14790339 (Version 1)
Quarter: 2018Q2

REPORT INFORMATION
  Report Type: Spontaneous
  Country: DE (occurrence: DE)
  Receive Date: 20180423
  Receipt Date: 20180423
  Transmission Date: 20180711
  Serious: Yes (Hospitalization)
  Sender: FDA-Public Use
  Company Number: DE-BAYER-2018-072631

PATIENT
  Age: 71 Year
  Sex: Male
  Weight: 88 kg

DRUGS (8)
  1. TORASEMID [Concomitant]
     Active Substance: TORSEMIDE
     Dosage: 10 MG, BID
     Route: 048
  2. ATORVASTATIN [Concomitant]
     Active Substance: ATORVASTATIN
     Dosage: 20 MG, OM
     Route: 048
  3. APIXABAN [Suspect]
     Active Substance: APIXABAN
     Dosage: 5 MG, BID
     Route: 048
  4. NEBIVOLOL. [Concomitant]
     Active Substance: NEBIVOLOL
     Dosage: 5 MG, OM
     Route: 048
  5. INDACATEROL [Concomitant]
     Active Substance: INDACATEROL
     Dosage: 143 ?G, UNK
     Route: 055
  6. ASPIRIN 100 MG [Suspect]
     Active Substance: ASPIRIN
     Dosage: 100 MG, OM
     Route: 048
  7. SITAGLIPTIN [Concomitant]
     Active Substance: SITAGLIPTIN
     Dosage: 100 MG, OM
     Route: 048
  8. GLYCOPYRRONIUM [Concomitant]
     Active Substance: GLYCOPYRRONIUM
     Dosage: 63 ?G, UNK

REACTIONS (3)
  - Melaena [Recovered/Resolved]
  - Haemorrhagic anaemia [Recovered/Resolved]
  - General physical health deterioration [Recovered/Resolved]
